FAERS Safety Report 6220626-2 (Version None)
Quarter: 2009Q2

REPORT INFORMATION
  Report Type: 
  Country: None (occurrence: None)
  Receive Date: 20090610
  Receipt Date: 20090603
  Transmission Date: 20091009
  Serious: Yes (Other)
  Sender: FDA-Public Use
  Company Number: DE-ROCHE-630632

PATIENT
  Sex: Male
  Weight: 70 kg

DRUGS (9)
  1. METHOXY POLYETHYLENE GLYCOL-EPOETIN BETA [Suspect]
     Indication: DRUG USE FOR UNKNOWN INDICATION
     Route: 065
     Dates: start: 20080401
  2. METHOXY POLYETHYLENE GLYCOL-EPOETIN BETA [Suspect]
     Dosage: ROUTE: INTRAVENOUS
     Route: 065
     Dates: start: 20080621
  3. ARANESP [Concomitant]
     Route: 042
     Dates: start: 20070401, end: 20070601
  4. ARANESP [Concomitant]
     Route: 042
     Dates: start: 20070601, end: 20070701
  5. ARANESP [Concomitant]
     Route: 042
     Dates: start: 20070801, end: 20070818
  6. ARANESP [Concomitant]
     Route: 042
     Dates: start: 20070821, end: 20071216
  7. ARANESP [Concomitant]
     Route: 042
     Dates: start: 20080103, end: 20080304
  8. ARANESP [Concomitant]
     Route: 042
     Dates: start: 20080305, end: 20080404
  9. EPOETIN BETA [Concomitant]
     Route: 042
     Dates: start: 20080406, end: 20080620

REACTIONS (1)
  - HAEMOGLOBIN DECREASED [None]
